FAERS Safety Report 5142319-5 (Version None)
Quarter: 2006Q4

REPORT INFORMATION
  Report Type: 
  Country: None (occurrence: None)
  Receive Date: 20061102
  Receipt Date: 20061011
  Transmission Date: 20070319
  Serious: Yes (Other)
  Sender: FDA-Public Use
  Company Number: PHEH2006US12758

PATIENT
  Age: 31 Year
  Sex: Female
  Weight: 31.746 kg

DRUGS (1)
  1. CLOZARIL [Suspect]
     Dosage: 300 MG, BID
     Route: 048

REACTIONS (5)
  - ABORTED PREGNANCY [None]
  - DISEASE RECURRENCE [None]
  - DRUG EXPOSURE DURING PREGNANCY [None]
  - PSYCHOTIC DISORDER [None]
  - ROAD TRAFFIC ACCIDENT [None]
